FAERS Safety Report 13643691 (Version 2)
Quarter: 2017Q3

REPORT INFORMATION
  Report Type: Spontaneous
  Country: US (occurrence: US)
  Receive Date: 20170612
  Receipt Date: 20170711
  Transmission Date: 20171127
  Serious: No
  Sender: FDA-Public Use
  Company Number: US-009507513-1706USA002284

PATIENT
  Age: 17 Year
  Sex: Female
  Weight: 86.17 kg

DRUGS (1)
  1. NEXPLANON [Suspect]
     Active Substance: ETONOGESTREL
     Dosage: IN THE LEFT ARM, DOSE FREQUENCY: EVERY 3 YEARS
     Route: 059
     Dates: start: 20150610

REACTIONS (2)
  - No adverse event [Unknown]
  - Migration of implanted drug [Not Recovered/Not Resolved]
